FAERS Safety Report 7773057-8 (Version None)
Quarter: 2011Q3

REPORT INFORMATION
  Report Type: 
  Country: None (occurrence: None)
  Receive Date: 20110922
  Receipt Date: 20100723
  Transmission Date: 20111222
  Serious: Yes (Other)
  Sender: FDA-Public Use
  Company Number: US-ASTRAZENECA-2010SE34489

PATIENT
  Age: 53 Year
  Sex: Female
  Weight: 147.9 kg

DRUGS (10)
  1. HUMALOG [Concomitant]
  2. KLOR-CON [Concomitant]
  3. ATENOLOL [Concomitant]
  4. SEROQUEL [Suspect]
     Indication: BIPOLAR DISORDER
     Route: 048
     Dates: start: 20100325, end: 20100607
  5. MORPHINE [Concomitant]
  6. FUROSEMIDE [Concomitant]
  7. LANTUS [Concomitant]
  8. LIPITOR [Concomitant]
  9. ASPIRIN [Concomitant]
  10. AMYTRIPTYLINE [Concomitant]

REACTIONS (6)
  - DIZZINESS [None]
  - SUICIDAL IDEATION [None]
  - NIGHTMARE [None]
  - WEIGHT INCREASED [None]
  - HEADACHE [None]
  - HYPERSOMNIA [None]
